FAERS Safety Report 6287711-0 (Version None)
Quarter: 2009Q3

REPORT INFORMATION
  Report Type: 
  Country: None (occurrence: None)
  Receive Date: 20090727
  Receipt Date: 20090727
  Transmission Date: 20100115
  Serious: Yes (Hospitalization)
  Sender: FDA-Public Use
  Company Number: None

PATIENT
  Sex: Female
  Weight: 54.4316 kg

DRUGS (1)
  1. TRANSDERM SCOP [Suspect]
     Dosage: 1 PATCH, 72 HOURS
     Dates: start: 20090704, end: 20090709

REACTIONS (8)
  - BALANCE DISORDER [None]
  - DIZZINESS [None]
  - FATIGUE [None]
  - IMPAIRED DRIVING ABILITY [None]
  - NAUSEA [None]
  - OVERDOSE [None]
  - SLUGGISHNESS [None]
  - VISUAL ACUITY REDUCED [None]
